FAERS Safety Report 21855677 (Version 2)
Quarter: 2023Q1

REPORT INFORMATION
  Report Type: Report from Study
  Country: FR (occurrence: FR)
  Receive Date: 20230112
  Receipt Date: 20230201
  Transmission Date: 20230418
  Serious: Yes (Other)
  Sender: FDA-Public Use
  Company Number: FR-AMGEN-FRACT2023000194

PATIENT
  Age: 59 Year
  Sex: Female
  Weight: 86 kg

DRUGS (7)
  1. PANITUMUMAB [Suspect]
     Active Substance: PANITUMUMAB
     Indication: Colorectal cancer
     Dosage: 520 NANOGRAM, QD/ CUMULATIVE DOSE: 2070 NG
     Route: 040
     Dates: start: 20221104
  2. OXALIPLATIN [Suspect]
     Active Substance: OXALIPLATIN
     Indication: Colorectal cancer
     Dosage: 170 NANOGRAM, QD/ CUMULATIVE DOSE: 675 NG
     Route: 040
     Dates: start: 20221104
  3. LEUCOVORIN CALCIUM [Suspect]
     Active Substance: LEUCOVORIN CALCIUM
     Indication: Colorectal cancer
     Dosage: 400 NANOGRAM, QD/ CUMULATIVE DOSE: 1600 NG
     Route: 040
     Dates: start: 20221104
  4. IRINOTECAN [Suspect]
     Active Substance: IRINOTECAN
     Indication: Colorectal cancer
     Dosage: 300 NANOGRAM, QD/ CUMULATIVE DOSE: 1200 NG
     Route: 040
     Dates: start: 20221104
  5. FLUOROURACIL [Suspect]
     Active Substance: FLUOROURACIL
     Indication: Colorectal cancer
     Dosage: 790 NANOGRAM, QD/ CUMULATIVE DOSE: 3160 NG (IV BOLUS)
     Route: 040
     Dates: start: 20221104
  6. FLUOROURACIL [Suspect]
     Active Substance: FLUOROURACIL
     Dosage: 4800 NANOGRAM, QD/ CUMULATIVE DOSE: 19200 NG (IV CONTINUOUS)
     Route: 040
     Dates: start: 20221104
  7. CANDESARTAN [Concomitant]
     Active Substance: CANDESARTAN
     Indication: Hypertension
     Dosage: 8 MILLIGRAM
     Route: 048
     Dates: start: 20221104

REACTIONS (1)
  - Atrial thrombosis [Not Recovered/Not Resolved]

NARRATIVE: CASE EVENT DATE: 20221230
